FAERS Safety Report 8381926-3 (Version None)
Quarter: 2012Q2

REPORT INFORMATION
  Report Type: 
  Country: None (occurrence: None)
  Receive Date: 20120524
  Receipt Date: 20120509
  Transmission Date: 20120825
  Serious: Yes (Other)
  Sender: FDA-Public Use
  Company Number: CA-JNJFOC-20120509794

PATIENT
  Sex: Female
  Weight: 113.8 kg

DRUGS (11)
  1. IRON [Concomitant]
     Route: 065
  2. TYLENOL [Concomitant]
     Route: 065
  3. PENTASA [Concomitant]
     Route: 065
  4. PREVACID [Concomitant]
     Route: 065
  5. CALCIUM [Concomitant]
     Route: 065
  6. REMICADE [Suspect]
     Indication: CROHN'S DISEASE
     Route: 042
     Dates: start: 20120326
  7. SYNTHROID [Concomitant]
     Route: 065
  8. WARFARIN SODIUM [Concomitant]
     Route: 065
  9. PREDNISONE TAB [Concomitant]
     Route: 065
  10. VITAMIN D [Concomitant]
     Route: 065
  11. ALENDRONATE SODIUM [Concomitant]
     Route: 065

REACTIONS (2)
  - EYE INFECTION [None]
  - PAIN [None]
